FAERS Safety Report 14756771 (Version 1)
Quarter: 2018Q2

REPORT INFORMATION
  Report Type: Spontaneous
  Country: US (occurrence: US)
  Receive Date: 20180413
  Receipt Date: 20180413
  Transmission Date: 20180711
  Serious: No
  Sender: FDA-Public Use
  Company Number: US-BION-006547

PATIENT
  Age: 76 Year
  Sex: Female
  Weight: 79.38 kg

DRUGS (2)
  1. ALEVE [Suspect]
     Active Substance: NAPROXEN SODIUM
     Indication: PAIN
     Dosage: DOSAGE USED: 1 LIQUID GEL AS NEEDED?DOSAGE FORM: TABLET/CAPLET/GELCAP
     Route: 048
  2. ADVAIR HFA [Concomitant]
     Active Substance: FLUTICASONE PROPIONATE\SALMETEROL XINAFOATE

REACTIONS (3)
  - Product physical consistency issue [Unknown]
  - Expired product administered [Not Recovered/Not Resolved]
  - Poor quality drug administered [Not Recovered/Not Resolved]
